FAERS Safety Report 9770619 (Version 1)
Quarter: 2013Q4

REPORT INFORMATION
  Report Type: Spontaneous
  Country: US (occurrence: US)
  Receive Date: 20131218
  Receipt Date: 20131218
  Transmission Date: 20140711
  Serious: Yes (Hospitalization)
  Sender: FDA-Public Use
  Company Number: US-GLAXOSMITHKLINE-A1053756A

PATIENT
  Age: 89 Year
  Sex: Female

DRUGS (4)
  1. ADVAIR [Suspect]
     Indication: ASTHMA
     Dosage: 1PUFF TWICE PER DAY
     Route: 055
     Dates: start: 2009
  2. LISINOPRIL [Concomitant]
     Dosage: 10MGD PER DAY
  3. PLAVIX [Concomitant]
     Dosage: 75MGD PER DAY
  4. NORVASC [Concomitant]
     Dosage: 10MGD PER DAY

REACTIONS (4)
  - Cerebrovascular accident [Unknown]
  - Wheezing [Unknown]
  - Drug administration error [Unknown]
  - Memory impairment [Unknown]
